FAERS Safety Report 13925290 (Version 1)
Quarter: 2017Q3

REPORT INFORMATION
  Report Type: Spontaneous
  Country: US (occurrence: US)
  Receive Date: 20170831
  Receipt Date: 20170831
  Transmission Date: 20171127
  Serious: Yes (Hospitalization)
  Sender: FDA-Public Use
  Company Number: US-BAYER-2017-161426

PATIENT
  Age: 79 Year
  Sex: Male

DRUGS (6)
  1. FUROSEMIDE. [Concomitant]
     Active Substance: FUROSEMIDE
  2. LISINOPRIL. [Concomitant]
     Active Substance: LISINOPRIL
  3. BUDESONIDE W/FORMOTEROL FUMARATE [Concomitant]
     Active Substance: BUDESONIDE\FORMOTEROL FUMARATE
  4. ACETYLSALICYLIC ACID({=100 MG) [Suspect]
     Active Substance: ASPIRIN
  5. OMEPRAZOLE. [Concomitant]
     Active Substance: OMEPRAZOLE
  6. SIMVASTATIN. [Concomitant]
     Active Substance: SIMVASTATIN

REACTIONS (2)
  - Retroperitoneal haematoma [Recovered/Resolved]
  - Shock haemorrhagic [Recovered/Resolved]
